FAERS Safety Report 8028661 (Version 2)
Quarter: 2013Q3

REPORT INFORMATION
  Report Type: Spontaneous
  Country: US (occurrence: US)
  Receive Date: 20110711
  Receipt Date: 20130829
  Transmission Date: 20140515
  Serious: Yes (Other)
  Sender: FDA-Public Use
  Company Number: US-PFIZER INC-2011151664

PATIENT
  Age: 47 Year
  Sex: Female

DRUGS (7)
  1. CHANTIX [Suspect]
     Indication: SMOKING CESSATION THERAPY
     Dosage: 0.5 MG, 1X/DAY
     Route: 048
     Dates: start: 20071001, end: 20071002
  2. CHANTIX [Suspect]
     Dosage: 0.5 MG, 2X/DAY
     Route: 048
     Dates: start: 20071003, end: 20071006
  3. CHANTIX [Suspect]
     Dosage: 1 MG, 2X/DAY
     Route: 048
     Dates: start: 20071007, end: 20071101
  4. ADVAIR [Concomitant]
     Dosage: 1 DF, 2X/DAY
     Route: 048
  5. SPIRIVA [Concomitant]
     Dosage: 18 UG, 1X/DAY, EVERY MORNING
  6. SYNTHROID [Concomitant]
     Dosage: 50 UG, 1X/DAY
  7. TOPAMAX [Concomitant]
     Dosage: UNK

REACTIONS (2)
  - Intentional overdose [Unknown]
  - Suicide attempt [Unknown]
